FAERS Safety Report 6339590-0 (Version None)
Quarter: 2009Q3

REPORT INFORMATION
  Report Type: 
  Country: None (occurrence: None)
  Receive Date: 20090903
  Receipt Date: 20090828
  Transmission Date: 20100115
  Serious: Yes (Hospitalization)
  Sender: FDA-Public Use
  Company Number: DE-BRISTOL-MYERS SQUIBB COMPANY-14758619

PATIENT
  Age: 47 Year
  Sex: Female

DRUGS (3)
  1. IXABEPILONE [Suspect]
     Indication: BREAST CANCER
     Dosage: NO.OF COURSES:2
     Route: 042
     Dates: start: 20090727
  2. CYCLOPHOSPHAMIDE [Suspect]
     Indication: BREAST CANCER
     Dosage: NO.OF COURSES:4
     Route: 042
     Dates: start: 20090504, end: 20090706
  3. DOXORUBICIN HCL [Suspect]
     Indication: BREAST CANCER
     Dosage: NO.OF COURSES:4
     Route: 042
     Dates: start: 20090504, end: 20090706

REACTIONS (1)
  - TACHYARRHYTHMIA [None]
